FAERS Safety Report 16229183 (Version 1)
Quarter: 2019Q2

REPORT INFORMATION
  Report Type: Spontaneous
  Country: FR (occurrence: FR)
  Receive Date: 20190423
  Receipt Date: 20190423
  Transmission Date: 20190711
  Serious: Yes (Hospitalization)
  Sender: FDA-Public Use
  Company Number: FR-PFIZER INC-2019165791

PATIENT
  Age: 73 Year
  Sex: Male
  Weight: 72 kg

DRUGS (10)
  1. HALAVEN [Suspect]
     Active Substance: ERIBULIN MESYLATE
     Indication: LIPOSARCOMA METASTATIC
     Dosage: 1.23 MG/M2, UNK
     Route: 041
     Dates: start: 20190114, end: 20190211
  2. CYMBALTA [Concomitant]
     Active Substance: DULOXETINE HYDROCHLORIDE
     Dosage: 30 MG, 1X/DAY
     Route: 048
  3. KARDEGIC [Concomitant]
     Active Substance: ASPIRIN DL-LYSINE
     Dosage: 160 MG, 1X/DAY
     Route: 048
     Dates: start: 201811
  4. TAMSULOSIN [Concomitant]
     Active Substance: TAMSULOSIN
     Dosage: UNK
     Route: 048
  5. UROMITEXAN [Suspect]
     Active Substance: MESNA
     Indication: PROPHYLAXIS
     Dosage: 6000 MG/M2, UNK
     Route: 041
     Dates: start: 20181017, end: 20181128
  6. HOLOXAN [Suspect]
     Active Substance: IFOSFAMIDE
     Indication: LIPOSARCOMA METASTATIC
     Dosage: 9000 MG, UNK
     Route: 041
     Dates: start: 20181017, end: 20181128
  7. ZOPICLONE [Concomitant]
     Active Substance: ZOPICLONE
     Dosage: 7.5 MG, 1X/DAY
     Route: 048
  8. ALPRAZOLAM. [Concomitant]
     Active Substance: ALPRAZOLAM
     Dosage: 0.5 MG, 1X/DAY
     Route: 048
  9. ADRIBLASTINE [Suspect]
     Active Substance: DOXORUBICIN
     Indication: LIPOSARCOMA METASTATIC
     Dosage: 140 MG, UNK
     Route: 041
     Dates: start: 20180704, end: 20180919
  10. INEXIUM [ESOMEPRAZOLE MAGNESIUM] [Concomitant]
     Active Substance: ESOMEPRAZOLE MAGNESIUM
     Dosage: 40 MG, 1X/DAY
     Route: 048

REACTIONS (1)
  - Cerebrovascular accident [Recovering/Resolving]

NARRATIVE: CASE EVENT DATE: 20190225
